FAERS Safety Report 12154612 (Version 5)
Quarter: 2016Q3

REPORT INFORMATION
  Report Type: Spontaneous
  Country: PE (occurrence: PE)
  Receive Date: 20160307
  Receipt Date: 20160708
  Transmission Date: 20161109
  Serious: Yes (Hospitalization, Disabling)
  Sender: FDA-Public Use
  Company Number: PE-SA-2016SA042508

PATIENT
  Age: 23 Year
  Sex: Female

DRUGS (2)
  1. CEREZYME [Suspect]
     Active Substance: IMIGLUCERASE
     Indication: GAUCHER^S DISEASE TYPE I
     Dosage: DOSE:2800 UNIT(S)
     Route: 041
     Dates: start: 1999, end: 201510
  2. CEREZYME [Suspect]
     Active Substance: IMIGLUCERASE
     Indication: GAUCHER^S DISEASE TYPE I
     Dosage: DOSE:2800 UNIT(S)
     Route: 041
     Dates: end: 20160507

REACTIONS (9)
  - Condition aggravated [Not Recovered/Not Resolved]
  - Abdominal pain [Recovered/Resolved]
  - Vaginal haemorrhage [Recovered/Resolved with Sequelae]
  - Decreased activity [Unknown]
  - Road traffic accident [Unknown]
  - Hepatosplenomegaly [Not Recovered/Not Resolved]
  - Poor venous access [Unknown]
  - Bone pain [Not Recovered/Not Resolved]
  - General physical health deterioration [Unknown]

NARRATIVE: CASE EVENT DATE: 2014
